FAERS Safety Report 19732375 (Version 2)
Quarter: 2021Q3

REPORT INFORMATION
  Report Type: Spontaneous
  Country: US (occurrence: US)
  Receive Date: 20210822
  Receipt Date: 20210824
  Transmission Date: 20211014
  Serious: Yes (Life-Threatening, Hospitalization)
  Sender: FDA-Public Use
  Company Number: US-TEVA-2021-US-1942314

PATIENT
  Age: 45 Year
  Sex: Male

DRUGS (9)
  1. HYDROXOCOBALAMIN [Suspect]
     Active Substance: HYDROXOCOBALAMIN
     Indication: SHOCK
     Route: 065
  2. VASOPRESSIN. [Suspect]
     Active Substance: VASOPRESSIN
     Indication: DISTRIBUTIVE SHOCK
     Dosage: ESCALATING DOSES
     Route: 065
  3. MILRINONE [Suspect]
     Active Substance: MILRINONE
     Indication: DISTRIBUTIVE SHOCK
     Dosage: ESCALATING DOSES
     Route: 065
  4. EPINEPHRINE. [Suspect]
     Active Substance: EPINEPHRINE
     Indication: DISTRIBUTIVE SHOCK
     Dosage: ESCALATING DOSES
     Route: 065
  5. HYDROXOCOBALAMIN [Suspect]
     Active Substance: HYDROXOCOBALAMIN
     Indication: DISTRIBUTIVE SHOCK
  6. NOREPINEPHRINE. [Suspect]
     Active Substance: NOREPINEPHRINE
     Indication: DISTRIBUTIVE SHOCK
     Dosage: ESCALATING DOSES
     Route: 065
  7. DOBUTAMINE [Suspect]
     Active Substance: DOBUTAMINE HYDROCHLORIDE
     Indication: DISTRIBUTIVE SHOCK
     Dosage: ESCALATING DOSES
     Route: 065
  8. METHYLENE BLUE. [Suspect]
     Active Substance: METHYLENE BLUE
     Indication: SHOCK
     Route: 065
  9. METHYLENE BLUE. [Suspect]
     Active Substance: METHYLENE BLUE
     Indication: DISTRIBUTIVE SHOCK

REACTIONS (3)
  - Off label use [Unknown]
  - Chromaturia [Recovered/Resolved]
  - Drug ineffective [Unknown]
